FAERS Safety Report 4316109-7 (Version None)
Quarter: 2004Q1

REPORT INFORMATION
  Report Type: 
  Country: None (occurrence: None)
  Receive Date: 20040310
  Receipt Date: 20020423
  Transmission Date: 20041129
  Serious: Yes (Hospitalization)
  Sender: FDA-Public Use
  Company Number: 30018689-NA01-1

PATIENT
  Age: 68 Year
  Sex: Female

DRUGS (21)
  1. EXTRANEAL [Suspect]
     Indication: RENAL FAILURE CHRONIC
     Dosage: 7.5% ICODEXTRIN 1.5 L; QD
     Dates: start: 20010122, end: 20020311
  2. DIANEAL PD4 (DIANEAL PD4 GLUCOSE AND ELECTROLYTES) [Concomitant]
  3. NUTRINEAL [Concomitant]
  4. EPREX [Concomitant]
  5. LASIX [Concomitant]
  6. TENORMIN [Concomitant]
  7. AMLOR (AMLODIPINE VESILATE) [Concomitant]
  8. LEVOTHYROXINE SODIUM [Concomitant]
  9. CORVASAL (MOLSIDOMINE) [Concomitant]
  10. ASPEGIC 1000 [Concomitant]
  11. CORDARONE [Concomitant]
  12. ATORVASTATIN CALCIUM [Concomitant]
  13. CALTRATE (CALCIUM CARBONATE) [Concomitant]
  14. STILNOX (ZOLPIDEM) [Concomitant]
  15. PROZAC [Concomitant]
  16. PEPDINE (FAMOTIDINE) [Concomitant]
  17. HYPERIUM (RILMENIDINE) [Concomitant]
  18. MIXTARD HUMAN 70/30 [Concomitant]
  19. ACTRAPID [Concomitant]
  20. NPH INSULIN [Concomitant]
  21. VENOFER [Concomitant]

REACTIONS (2)
  - CONSTIPATION [None]
  - PERITONITIS [None]
